FAERS Safety Report 19529137 (Version 4)
Quarter: 2023Q2

REPORT INFORMATION
  Report Type: Report from Study
  Country: US (occurrence: US)
  Receive Date: 20210713
  Receipt Date: 20230606
  Transmission Date: 20230721
  Serious: Yes (Hospitalization, Disabling, Other)
  Sender: FDA-Public Use
  Company Number: US-SANOFI-00594186

PATIENT
  Age: 60 Year
  Sex: Male

DRUGS (5)
  1. TERIFLUNOMIDE [Suspect]
     Active Substance: TERIFLUNOMIDE
     Indication: Multiple sclerosis
     Dosage: 14 MG, QD
     Route: 048
     Dates: start: 20160619
  2. CIPRO [Suspect]
     Active Substance: CIPROFLOXACIN HYDROCHLORIDE
     Dosage: UNK
  3. HYDROCODONE [Concomitant]
     Active Substance: HYDROCODONE
     Dosage: UNK
     Route: 065
  4. IBUPROFEN [Concomitant]
     Active Substance: IBUPROFEN
     Dosage: UNK
     Route: 065
  5. ACETAMINOPHEN [Concomitant]
     Active Substance: ACETAMINOPHEN
     Dosage: UNK

REACTIONS (32)
  - Urethral stenosis [Not Recovered/Not Resolved]
  - Joint injury [Recovering/Resolving]
  - Back disorder [Unknown]
  - Condition aggravated [Unknown]
  - Renal failure [Unknown]
  - Blood urine present [Not Recovered/Not Resolved]
  - Fluid retention [Unknown]
  - Walking aid user [Unknown]
  - Arthralgia [Unknown]
  - Hemiparesis [Unknown]
  - Wheelchair user [Unknown]
  - Disability [Unknown]
  - Loss of personal independence in daily activities [Not Recovered/Not Resolved]
  - Myocardial infarction [Recovered/Resolved]
  - Fall [Unknown]
  - Wound [Unknown]
  - Spinal fusion surgery [Unknown]
  - Balance disorder [Not Recovered/Not Resolved]
  - Ligament sprain [Not Recovered/Not Resolved]
  - Limb injury [Not Recovered/Not Resolved]
  - Exostosis [Unknown]
  - Urinary incontinence [Recovering/Resolving]
  - Musculoskeletal stiffness [Recovering/Resolving]
  - Pain [Unknown]
  - Haemoptysis [Unknown]
  - Confusional state [Unknown]
  - Gait disturbance [Unknown]
  - Gastrointestinal inflammation [Unknown]
  - Weight decreased [Unknown]
  - Muscle strain [Unknown]
  - Asthenia [Unknown]
  - Intentional dose omission [Unknown]

NARRATIVE: CASE EVENT DATE: 20200101
